FAERS Safety Report 8881188 (Version 5)
Quarter: 2012Q4

REPORT INFORMATION
  Report Type: 
  Country: US (occurrence: US)
  Receive Date: 20121031
  Receipt Date: 20121217
  Transmission Date: 20130627
  Serious: Yes (Death, Life-Threatening, Hospitalization)
  Sender: FDA-Public Use
  Company Number: PHEH2012US021061

PATIENT
  Age: 48 Year
  Sex: Female

DRUGS (15)
  1. GILENYA [Suspect]
     Indication: MULTIPLE SCLEROSIS
     Dosage: 0.5 mg, QD
     Route: 048
     Dates: start: 20111007
  2. AMPYRA [Suspect]
     Dosage: 10 mg, UNK
     Route: 048
     Dates: start: 20100423
  3. INDOMETHACIN [Concomitant]
  4. OXYCODONE [Concomitant]
  5. BUSPIRONE [Concomitant]
     Route: 048
  6. VESICARE [Concomitant]
     Route: 048
  7. CHOLECALCIFEROL [Concomitant]
     Route: 048
  8. NUVIGIL [Concomitant]
     Route: 048
  9. DIAZEPAM [Concomitant]
     Route: 048
  10. BACLOFEN [Concomitant]
  11. OMEPRAZOLE [Concomitant]
  12. GABAPENTIN [Concomitant]
  13. LEVOTHYROXINE [Concomitant]
  14. OXYCONTIN [Concomitant]
  15. MOTRIN [Concomitant]

REACTIONS (6)
  - Pulmonary embolism [Fatal]
  - Dyspnoea [Fatal]
  - Loss of consciousness [Fatal]
  - Musculoskeletal discomfort [Unknown]
  - Pain in extremity [Unknown]
  - Hypoaesthesia [Unknown]
